FAERS Safety Report 21096751 (Version 11)
Quarter: 2024Q3

REPORT INFORMATION
  Report Type: Report from Study
  Country: GB (occurrence: GB)
  Receive Date: 20220718
  Receipt Date: 20240914
  Transmission Date: 20241016
  Serious: Yes (Hospitalization, Other)
  Sender: ROCHE
  Company Number: GB-ROCHE-3138286

PATIENT
  Age: 7 Year
  Sex: Female

DRUGS (1)
  1. EVRYSDI [Suspect]
     Active Substance: RISDIPLAM
     Indication: Spinal muscular atrophy
     Dosage: DOSE 0.75 MG?5.8ML DAILY
     Route: 048
     Dates: start: 20210514

REACTIONS (5)
  - Intramedullary rod insertion [Unknown]
  - Weight decreased [Unknown]
  - Incorrect dose administered [Unknown]
  - Spinal disorder [Unknown]
  - Back disorder [Unknown]
